FAERS Safety Report 5951110-9 (Version None)
Quarter: 2008Q4

REPORT INFORMATION
  Report Type: 
  Country: None (occurrence: None)
  Receive Date: 20081113
  Receipt Date: 20081103
  Transmission Date: 20090506
  Serious: Yes (Hospitalization)
  Sender: FDA-Public Use
  Company Number: US-BAYER-200836453NA

PATIENT
  Age: 55 Year
  Sex: Female

DRUGS (19)
  1. BETASERON [Suspect]
     Indication: MULTIPLE SCLEROSIS
  2. PREVACID [Concomitant]
  3. CALACON [Concomitant]
  4. PREMARIN [Concomitant]
  5. LASIX [Concomitant]
  6. POTASSIUM SR [Concomitant]
  7. METHADONE HCL [Concomitant]
  8. RITALIN [Concomitant]
  9. VYTORIN [Concomitant]
  10. ZANAFLEX [Concomitant]
  11. BONIVA [Concomitant]
  12. NADOLOL [Concomitant]
  13. KLONIDINE [Concomitant]
  14. CLONAZEPAM [Concomitant]
  15. LYRICA [Concomitant]
  16. DARVOCET [Concomitant]
  17. DEPAKOTE [Concomitant]
  18. CALCIUM [Concomitant]
  19. MULTI-VITAMIN [Concomitant]

REACTIONS (3)
  - HEADACHE [None]
  - MULTIPLE SCLEROSIS [None]
  - UNEVALUABLE EVENT [None]
